FAERS Safety Report 5819258-7 (Version None)
Quarter: 2008Q3

REPORT INFORMATION
  Report Type: 
  Country: None (occurrence: None)
  Receive Date: 20080723
  Receipt Date: 20080711
  Transmission Date: 20090109
  Serious: Yes (Hospitalization, Other)
  Sender: FDA-Public Use
  Company Number: US-BAYER-200811648BCC

PATIENT
  Age: 25 Year
  Sex: Female
  Weight: 88 kg

DRUGS (2)
  1. ASPIRIN [Suspect]
     Indication: PYREXIA
     Dosage: UNIT DOSE: 325 MG
     Route: 048
  2. TYLENOL [Concomitant]

REACTIONS (12)
  - ADHESION [None]
  - DYSPEPSIA [None]
  - FAECAL INCONTINENCE [None]
  - GASTRIC DISORDER [None]
  - GASTROOESOPHAGEAL REFLUX DISEASE [None]
  - HAEMATEMESIS [None]
  - HEPATITIS B [None]
  - HERNIA [None]
  - HYPOGLYCAEMIA [None]
  - MEASLES [None]
  - OBSTRUCTION GASTRIC [None]
  - PAIN [None]
